FAERS Safety Report 9407620 (Version 1)
Quarter: 2013Q3

REPORT INFORMATION
  Report Type: Spontaneous
  Country: US (occurrence: None)
  Receive Date: 20130717
  Receipt Date: 20130717
  Transmission Date: 20140515
  Serious: Yes (Other)
  Sender: FDA-Public Use
  Company Number: None

PATIENT
  Age: 33 Year
  Sex: Male
  Weight: 73.94 kg

DRUGS (6)
  1. GAMMAGARD [Suspect]
     Indication: IMMUNODEFICIENCY
     Dosage: ONCE WEEKLY,JULY 2012 START OF THERAPY.
     Route: 058
  2. HUMALOG [Concomitant]
  3. CELLCEPT [Concomitant]
  4. XYZAL [Concomitant]
  5. NORTRIPTYLINE HCL [Concomitant]
  6. TYLENOL 50 MG [Concomitant]

REACTIONS (1)
  - Hepatitis B antibody positive [None]
